FAERS Safety Report 12372549 (Version 2)
Quarter: 2016Q2

REPORT INFORMATION
  Report Type: Spontaneous
  Country: CA (occurrence: CA)
  Receive Date: 20160516
  Receipt Date: 20160516
  Transmission Date: 20160815
  Serious: Yes (Hospitalization, Other)
  Sender: FDA-Public Use
  Company Number: CA-WATSON-2016-10122

PATIENT
  Age: 24 Year
  Sex: Female

DRUGS (7)
  1. BUPROPION HYDROCHLORIDE SR [Suspect]
     Active Substance: BUPROPION HYDROCHLORIDE
     Indication: DRUG ABUSE
     Dosage: THE 7TH INJECTION
     Route: 013
  2. BUPROPION HYDROCHLORIDE SR [Suspect]
     Active Substance: BUPROPION HYDROCHLORIDE
     Dosage: 1800 MG, TOTAL( 6 INJECTIONS AT A RATE OF 300 MG PER HOUR)
     Route: 042
  3. CLONAZEPAM (UNKNOWN) [Suspect]
     Active Substance: CLONAZEPAM
     Indication: PRODUCT USED FOR UNKNOWN INDICATION
     Dosage: UP TO 10 MG DAILY
     Route: 065
  4. OLANZAPINE. [Concomitant]
     Active Substance: OLANZAPINE
     Indication: PRODUCT USED FOR UNKNOWN INDICATION
     Dosage: 10 MG, DAILY
     Route: 065
  5. CYMBALTA [Concomitant]
     Active Substance: DULOXETINE HYDROCHLORIDE
     Indication: PRODUCT USED FOR UNKNOWN INDICATION
     Dosage: 90 MG, DAILY
     Route: 065
  6. LITHIUM. [Concomitant]
     Active Substance: LITHIUM
     Indication: PRODUCT USED FOR UNKNOWN INDICATION
     Dosage: 900 MG, DAILY
     Route: 065
  7. CLONAZEPAM (UNKNOWN) [Suspect]
     Active Substance: CLONAZEPAM
     Dosage: 1 MG, TID
     Route: 065

REACTIONS (9)
  - Compartment syndrome [Recovering/Resolving]
  - Incorrect route of drug administration [Unknown]
  - Bacillus infection [Unknown]
  - Drug abuse [Unknown]
  - Drug diversion [Unknown]
  - Overdose [Unknown]
  - Dry gangrene [Recovering/Resolving]
  - Wrong technique in product usage process [Unknown]
  - Cellulitis [Unknown]
